FAERS Safety Report 8246888-8 (Version None)
Quarter: 2012Q1

REPORT INFORMATION
  Report Type: 
  Country: None (occurrence: None)
  Receive Date: 20120330
  Receipt Date: 20120322
  Transmission Date: 20120608
  Serious: Yes (Other)
  Sender: FDA-Public Use
  Company Number: FR-NAPPMUNDI-GBR-2012-0010110

PATIENT
  Age: 69 Year
  Sex: Male

DRUGS (2)
  1. OXYCONTIN [Suspect]
     Indication: PAIN
     Dosage: 300 MG, BID
     Route: 048
     Dates: start: 20111021, end: 20120217
  2. OXYCODONE HYDROCHLORIDE [Suspect]
     Indication: PAIN
     Dosage: 70 MG, Q6H
     Route: 048
     Dates: start: 20111021, end: 20120217

REACTIONS (1)
  - DIPLEGIA [None]
